FAERS Safety Report 5749008-4 (Version None)
Quarter: 2008Q2

REPORT INFORMATION
  Report Type: 
  Country: None (occurrence: None)
  Receive Date: 20080527
  Receipt Date: 20080520
  Transmission Date: 20081010
  Serious: Yes (Hospitalization)
  Sender: FDA-Public Use
  Company Number: CA-WYE-G01564008

PATIENT
  Sex: Male
  Weight: 76 kg

DRUGS (7)
  1. TORISEL [Suspect]
     Route: 042
     Dates: start: 20080509, end: 20080512
  2. OCTREOTIDE ACETATE [Concomitant]
     Dosage: UNKNOWN
     Dates: start: 20080428
  3. TYLENOL W/ CODEINE NO. 3 [Concomitant]
     Dosage: UNKNOWN
     Dates: start: 20070901
  4. GRAVOL TAB [Concomitant]
     Dosage: UNKNOWN
     Dates: start: 20080424
  5. CODEINE SUL TAB [Concomitant]
     Dosage: UNKNOWN
     Dates: start: 20070901
  6. METFORMIN HCL [Concomitant]
     Route: 048
     Dates: start: 20080509, end: 20080512
  7. IMODIUM [Concomitant]
     Dosage: UNKNOWN
     Route: 048
     Dates: start: 20080424

REACTIONS (5)
  - HYPOXIA [None]
  - NAUSEA [None]
  - PNEUMONIA ASPIRATION [None]
  - SMALL INTESTINAL OBSTRUCTION [None]
  - VOMITING [None]
